FAERS Safety Report 5380251-2 (Version None)
Quarter: 2007Q3

REPORT INFORMATION
  Report Type: 
  Country: None (occurrence: None)
  Receive Date: 20070706
  Receipt Date: 20070607
  Transmission Date: 20080115
  Serious: No
  Sender: FDA-Public Use
  Company Number: A0651411A

PATIENT
  Age: 43 Year
  Sex: Female
  Weight: 68.2 kg

DRUGS (5)
  1. TYKERB [Suspect]
     Indication: BREAST CANCER
     Dosage: 5TAB PER DAY
     Route: 048
     Dates: start: 20070414
  2. XELODA [Concomitant]
  3. COUMADIN [Concomitant]
  4. THYROID TAB [Concomitant]
  5. FASLODEX [Concomitant]

REACTIONS (5)
  - DIARRHOEA [None]
  - DRY SKIN [None]
  - NAUSEA [None]
  - ORAL HERPES [None]
  - RASH [None]
